FAERS Safety Report 4667723-0 (Version None)
Quarter: 2005Q2

REPORT INFORMATION
  Report Type: 
  Country: None (occurrence: None)
  Receive Date: 20050520
  Receipt Date: 20050520
  Transmission Date: 20051028
  Serious: No
  Sender: FDA-Public Use
  Company Number: None

PATIENT

DRUGS (2)
  1. PRILOSEC OTC [Suspect]
     Indication: HYPERCHOLESTEROLAEMIA
     Dosage: 20 MG QD
  2. PRILOSEC OTC [Suspect]
     Indication: TRISOMY 21
     Dosage: 20 MG QD

REACTIONS (2)
  - ABDOMINAL PAIN UPPER [None]
  - GASTROOESOPHAGEAL REFLUX DISEASE [None]
